FAERS Safety Report 14217578 (Version 2)
Quarter: 2017Q4

REPORT INFORMATION
  Report Type: Report from Study
  Country: US (occurrence: US)
  Receive Date: 20171123
  Receipt Date: 20171215
  Transmission Date: 20180321
  Serious: Yes (Hospitalization)
  Sender: FDA-Public Use
  Company Number: US-VIFOR (INTERNATIONAL) INC.-VIT-2017-12779

PATIENT
  Age: 76 Year
  Sex: Male
  Weight: 90.8 kg

DRUGS (9)
  1. VELTASSA [Suspect]
     Active Substance: PATIROMER
     Dates: start: 2017
  2. ISTALOL [Concomitant]
     Active Substance: TIMOLOL MALEATE
  3. CIPROFLOXACIN. [Concomitant]
     Active Substance: CIPROFLOXACIN
  4. TAMSULOSIN [Concomitant]
     Active Substance: TAMSULOSIN
  5. VELTASSA [Suspect]
     Active Substance: PATIROMER
     Indication: HYPERKALAEMIA
     Dosage: DISSOLVED IN 1/3 CUP WATER
     Route: 048
     Dates: start: 201611, end: 2017
  6. ACETYLSALICYLIC ACID [Concomitant]
     Active Substance: ASPIRIN
  7. FUROSEMIDE. [Concomitant]
     Active Substance: FUROSEMIDE
  8. OMEPRAZOLE. [Concomitant]
     Active Substance: OMEPRAZOLE
  9. ATORVASTATIN [Concomitant]
     Active Substance: ATORVASTATIN

REACTIONS (2)
  - Sepsis [Recovered/Resolved]
  - Urinary tract infection [Recovered/Resolved]

NARRATIVE: CASE EVENT DATE: 20171020
